FAERS Safety Report 24273490 (Version 1)
Quarter: 2024Q3

REPORT INFORMATION
  Report Type: Spontaneous
  Country: CA (occurrence: CA)
  Receive Date: 20240902
  Receipt Date: 20240902
  Transmission Date: 20241017
  Serious: Yes (Other)
  Sender: PFIZER
  Company Number: CA-PFIZER INC-202300360324

PATIENT
  Age: 82 Year
  Sex: Female
  Weight: 59 kg

DRUGS (6)
  1. RUXIENCE [Suspect]
     Active Substance: RITUXIMAB-PVVR
     Indication: Granulomatosis with polyangiitis
     Dosage: 650 MG, UPDATED TO 4 DOSES FROM FIRST AND SUBSEQUENT INFUSION
     Route: 042
     Dates: start: 20240129
  2. RUXIENCE [Suspect]
     Active Substance: RITUXIMAB-PVVR
     Indication: Microscopic polyangiitis
     Dosage: 650 MG, UPDATED TO 4 DOSES FROM FIRST AND SUBSEQUENT INFUSION (650 MG, AFTER 1 WEEK)
     Route: 042
     Dates: start: 20240212, end: 20240212
  3. RUXIENCE [Suspect]
     Active Substance: RITUXIMAB-PVVR
     Dosage: 650 MG, UPDATED TO 4 DOSES FROM FIRST AND SUBSEQUENT INFUSION (650 MG, AFTER 1 WEEK)
     Route: 042
     Dates: start: 20240212, end: 20240212
  4. RUXIENCE [Suspect]
     Active Substance: RITUXIMAB-PVVR
     Dosage: 650 MG, WEEKLY  FOR 4 WEEKS (W4) (PRESCRIBED UPDATED TO 4 DOSES FROM FIRST AND SUBSEQUENT INFUSION)
     Route: 042
     Dates: start: 20240220, end: 20240220
  5. RUXIENCE [Suspect]
     Active Substance: RITUXIMAB-PVVR
     Dosage: 650 MG, WEEKLY  FOR 4 WEEKS (W4) (PRESCRIBED UPDATED TO 4 DOSES FROM FIRST AND SUBSEQUENT INFUSION)
     Route: 042
     Dates: start: 20240220, end: 20240220
  6. RUXIENCE [Suspect]
     Active Substance: RITUXIMAB-PVVR
     Dosage: 500 MG, SUBSEQUENT DAY 1(EVERY 6 MONTHS X 24 MONTHS)
     Route: 042
     Dates: start: 20240826

REACTIONS (6)
  - Renal impairment [Not Recovered/Not Resolved]
  - Pruritus [Not Recovered/Not Resolved]
  - Condition aggravated [Not Recovered/Not Resolved]
  - Off label use [Unknown]
  - Intentional product use issue [Unknown]
  - Off label use [Unknown]

NARRATIVE: CASE EVENT DATE: 20240212
